FAERS Safety Report 7611934-9 (Version None)
Quarter: 2011Q3

REPORT INFORMATION
  Report Type: 
  Country: None (occurrence: None)
  Receive Date: 20110715
  Receipt Date: 20110708
  Transmission Date: 20111222
  Serious: Yes (Other)
  Sender: FDA-Public Use
  Company Number: SK-ABBOTT-11P-260-0837324-00

PATIENT

DRUGS (2)
  1. VALPROATE SODIUM [Suspect]
     Indication: EPILEPSY
  2. VALPROATE SODIUM [Suspect]

REACTIONS (3)
  - FATIGUE [None]
  - NAUSEA [None]
  - DIPLOPIA [None]
